FAERS Safety Report 9223173 (Version 1)
Quarter: 2013Q2

REPORT INFORMATION
  Report Type: Spontaneous
  Country: US (occurrence: None)
  Receive Date: 20130409
  Receipt Date: 20130409
  Transmission Date: 20140414
  Serious: Yes (Death)
  Sender: FDA-Public Use
  Company Number: None

PATIENT
  Age: 40 Year
  Sex: Male

DRUGS (1)
  1. ZELBORAF [Suspect]
     Indication: SKIN CANCER
     Dosage: 240MG QD PO
     Route: 048
     Dates: start: 20120824, end: 20130324

REACTIONS (1)
  - Cerebral haemorrhage [None]
